FAERS Safety Report 6872102-1 (Version None)
Quarter: 2010Q3

REPORT INFORMATION
  Report Type: 
  Country: None (occurrence: None)
  Receive Date: 20100723
  Receipt Date: 20100716
  Transmission Date: 20110219
  Serious: Yes (Hospitalization)
  Sender: FDA-Public Use
  Company Number: US-PERRIGO-10US011382

PATIENT
  Sex: Female
  Weight: 60.771 kg

DRUGS (3)
  1. POLYETHYLENE GLYCOL 3350 17G 181 [Suspect]
     Indication: CONSTIPATION
     Dosage: 17 G, SINGLE
     Route: 048
     Dates: start: 20100416, end: 20100416
  2. LASIX [Concomitant]
     Indication: CARDIAC DISORDER
     Dosage: UNKNOWN MG, DAILY
     Route: 048
     Dates: start: 20000716
  3. NORVASC [Concomitant]
     Indication: CARDIAC DISORDER
     Dosage: UNKNOWN MG, DAILY
     Route: 048
     Dates: start: 20000716

REACTIONS (2)
  - HYPERSENSITIVITY [None]
  - SWOLLEN TONGUE [None]
